FAERS Safety Report 14400231 (Version 2)
Quarter: 2018Q1

REPORT INFORMATION
  Report Type: Spontaneous
  Country: US (occurrence: US)
  Receive Date: 20180117
  Receipt Date: 20180322
  Transmission Date: 20180509
  Serious: Yes (Death, Life-Threatening, Hospitalization)
  Sender: FDA-Public Use
  Company Number: US-JNJFOC-20171133088

PATIENT
  Age: 73 Year
  Sex: Male

DRUGS (1)
  1. XARELTO [Suspect]
     Active Substance: RIVAROXABAN
     Indication: DEEP VEIN THROMBOSIS
     Route: 048
     Dates: start: 201412, end: 201501

REACTIONS (7)
  - Off label use [Unknown]
  - Acute kidney injury [Fatal]
  - Gastrointestinal haemorrhage [Fatal]
  - Prescribed underdose [Unknown]
  - Septic shock [Fatal]
  - Respiratory failure [Unknown]
  - Anaemia [Unknown]

NARRATIVE: CASE EVENT DATE: 201412
